FAERS Safety Report 10082399 (Version 1)
Quarter: 2014Q2

REPORT INFORMATION
  Report Type: Spontaneous
  Country: BE (occurrence: BE)
  Receive Date: 20140416
  Receipt Date: 20140416
  Transmission Date: 20141212
  Serious: Yes (Death, Hospitalization, Other)
  Sender: FDA-Public Use
  Company Number: BE-TAKEDA-2014TUS002859

PATIENT
  Age: 19 Year
  Sex: Male

DRUGS (3)
  1. COLCHICINE [Suspect]
     Dosage: 30 MG, UNK
  2. HYDROCHLOROTHIAZIDE [Suspect]
  3. DIAZEPAM [Suspect]

REACTIONS (8)
  - Acute respiratory distress syndrome [Fatal]
  - Toxicity to various agents [Fatal]
  - Pyrexia [Unknown]
  - Dyspnoea [Unknown]
  - Agitation [Unknown]
  - Cyanosis [Unknown]
  - Abdominal pain [Unknown]
  - Nausea [Unknown]
